FAERS Safety Report 7322890-5 (Version None)
Quarter: 2011Q1

REPORT INFORMATION
  Report Type: 
  Country: None (occurrence: None)
  Receive Date: 20110301
  Receipt Date: 20110215
  Transmission Date: 20110831
  Serious: Yes (Hospitalization)
  Sender: FDA-Public Use
  Company Number: US-MYLANLABS-2011S1003263

PATIENT
  Age: 63 Year
  Sex: Male
  Weight: 66 kg

DRUGS (9)
  1. HYDRALAZINE [Concomitant]
     Route: 048
  2. SIMVASTATIN [Suspect]
     Indication: HYPERLIPIDAEMIA
     Route: 048
  3. METOPROLOL [Concomitant]
     Dosage: RECENTLY CHANGED FROM 100MG TWICE DAILY.
     Route: 048
  4. ISOSORBIDE MONONITRATE [Concomitant]
     Route: 048
  5. RANOLAZINE [Interacting]
     Route: 048
  6. FUROSEMIDE [Concomitant]
     Route: 048
  7. CLOPIDOGREL [Concomitant]
     Route: 048
  8. NITROGLYCERIN [Concomitant]
     Indication: ANGINA PECTORIS
     Route: 048
  9. OMEPRAZOLE [Concomitant]
     Route: 048

REACTIONS (2)
  - DRUG INTERACTION [None]
  - RHABDOMYOLYSIS [None]
